FAERS Safety Report 9335425 (Version 3)
Quarter: 2013Q3

REPORT INFORMATION
  Report Type: Spontaneous
  Country: DZ (occurrence: DZ)
  Receive Date: 20130606
  Receipt Date: 20130703
  Transmission Date: 20140515
  Serious: Yes (Life-Threatening, Hospitalization, Other)
  Sender: FDA-Public Use
  Company Number: DZ-ROCHE-1232871

PATIENT
  Sex: Female

DRUGS (2)
  1. AVASTIN [Suspect]
     Indication: BREAST CANCER
     Route: 042
     Dates: start: 2013
  2. TAXOL [Suspect]
     Indication: BREAST CANCER
     Route: 065
     Dates: start: 2013

REACTIONS (10)
  - Muscle disorder [Recovering/Resolving]
  - Dysphagia [Recovered/Resolved]
  - Respiratory disorder [Not Recovered/Not Resolved]
  - Hypotonia [Recovering/Resolving]
  - Abasia [Recovering/Resolving]
  - Choking [Recovering/Resolving]
  - Ecchymosis [Unknown]
  - Polymyositis [Unknown]
  - Speech disorder [Recovering/Resolving]
  - Weight decreased [Unknown]
